APPROVED DRUG PRODUCT: CEFADROXIL
Active Ingredient: CEFADROXIL/CEFADROXIL HEMIHYDRATE
Strength: EQ 500MG BASE/5ML
Dosage Form/Route: FOR SUSPENSION;ORAL
Application: A091036 | Product #002
Applicant: HIKMA PHARMACEUTICALS
Approved: Nov 28, 2012 | RLD: No | RS: No | Type: DISCN